FAERS Safety Report 23970662 (Version 1)
Quarter: 2024Q2

REPORT INFORMATION
  Report Type: Spontaneous
  Country: US (occurrence: US)
  Receive Date: 20240613
  Receipt Date: 20240613
  Transmission Date: 20240716
  Serious: Yes (Other)
  Sender: FDA-Public Use
  Company Number: US-002147023-NVSC2024US120335

PATIENT
  Age: 45 Year
  Sex: Female

DRUGS (2)
  1. LEQVIO [Suspect]
     Active Substance: INCLISIRAN SODIUM
     Indication: Product used for unknown indication
     Dosage: UNK (284MG/1.5ML) (FREQUENCY-DAY 1, DAY 90-THEN Q6MONTHS)
     Route: 058
  2. LEQVIO [Suspect]
     Active Substance: INCLISIRAN SODIUM
     Dosage: UNK (2ND DOSE)
     Route: 058
     Dates: start: 20240513

REACTIONS (2)
  - Pneumonia [Unknown]
  - Hepatic enzyme increased [Unknown]
